FAERS Safety Report 5026650-X (Version None)
Quarter: 2006Q2

REPORT INFORMATION
  Report Type: 
  Country: None (occurrence: None)
  Receive Date: 20060615
  Receipt Date: 20060425
  Transmission Date: 20061013
  Serious: Yes (Other)
  Sender: FDA-Public Use
  Company Number: PAR-3199-AE

PATIENT
  Sex: Female

DRUGS (1)
  1. FLUTICASONE NASAL SPRAY [Suspect]
     Route: 045
     Dates: start: 20060324

REACTIONS (5)
  - ALOPECIA [None]
  - DEPENDENCE [None]
  - DRUG INEFFECTIVE [None]
  - DYSGEUSIA [None]
  - PHARMACEUTICAL PRODUCT COMPLAINT [None]
